FAERS Safety Report 11371253 (Version 1)
Quarter: 2015Q3

REPORT INFORMATION
  Report Type: Spontaneous
  Country: US (occurrence: US)
  Receive Date: 20150812
  Receipt Date: 20150812
  Transmission Date: 20151125
  Serious: No
  Sender: FDA-Public Use
  Company Number: US-PFIZER INC-2015264756

PATIENT
  Age: 68 Year
  Sex: Female
  Weight: 63.49 kg

DRUGS (4)
  1. GABAPENTIN. [Suspect]
     Active Substance: GABAPENTIN
     Dosage: 300 MG, 3X/DAY
  2. GABAPENTIN. [Suspect]
     Active Substance: GABAPENTIN
     Dosage: 600 MG, DAILY
  3. HUMALOG [Concomitant]
     Active Substance: INSULIN LISPRO
     Dosage: 50/50 18 UNITS
  4. GABAPENTIN. [Suspect]
     Active Substance: GABAPENTIN
     Indication: NEUROPATHY PERIPHERAL
     Dosage: 300 MG, DAILY (ONE CAPSULE DAILY FOR THREE DAYS)

REACTIONS (2)
  - Weight increased [Unknown]
  - Product use issue [Unknown]
